FAERS Safety Report 6952260-0 (Version None)
Quarter: 2010Q3

REPORT INFORMATION
  Report Type: 
  Country: None (occurrence: None)
  Receive Date: 20100829
  Receipt Date: 20100428
  Transmission Date: 20110219
  Serious: No
  Sender: FDA-Public Use
  Company Number: US-ABBOTT-10P-163-0641191-00

PATIENT
  Sex: Male
  Weight: 104.42 kg

DRUGS (2)
  1. NIASPAN [Suspect]
     Indication: BLOOD TRIGLYCERIDES INCREASED
     Dosage: A BED TIME
     Dates: start: 20100315
  2. NIASPAN [Suspect]
     Dosage: A BED TIME

REACTIONS (1)
  - FLUSHING [None]
